FAERS Safety Report 22299148 (Version 1)
Quarter: 2023Q2

REPORT INFORMATION
  Report Type: Spontaneous
  Country: US (occurrence: None)
  Receive Date: 20230508
  Receipt Date: 20230508
  Transmission Date: 20230722
  Serious: No
  Sender: FDA-Public Use
  Company Number: None

PATIENT
  Sex: Female
  Weight: 66.68 kg

DRUGS (4)
  1. GLEOSTINE [Suspect]
     Active Substance: LOMUSTINE
     Indication: Brain neoplasm malignant
     Dosage: 80 MG Q 6 WEEKS ORAL
     Route: 048
     Dates: start: 202305, end: 20230508
  2. GLEOSTINE [Suspect]
     Active Substance: LOMUSTINE
     Indication: Brain neoplasm malignant
     Dosage: 100MG Q 6 WEEKS ORAL?
     Route: 048
     Dates: start: 202305, end: 20230508
  3. GABAPENTIN [Concomitant]
     Active Substance: GABAPENTIN
  4. ZOFRAN [Concomitant]

REACTIONS (1)
  - Hospice care [None]
